FAERS Safety Report 20930994 (Version 12)
Quarter: 2023Q1

REPORT INFORMATION
  Report Type: Report from Study
  Country: IE (occurrence: IE)
  Receive Date: 20220608
  Receipt Date: 20230324
  Transmission Date: 20230418
  Serious: Yes (Other)
  Sender: FDA-Public Use
  Company Number: IE-NOVARTISPH-NVSC2022IE049800

PATIENT
  Age: 73 Year
  Sex: Female

DRUGS (4)
  1. RIBOCICLIB [Suspect]
     Active Substance: RIBOCICLIB
     Indication: Breast cancer metastatic
     Dosage: 600 MG
     Route: 065
  2. RIBOCICLIB [Suspect]
     Active Substance: RIBOCICLIB
     Dosage: 400 MG
     Route: 048
  3. RIBOCICLIB [Suspect]
     Active Substance: RIBOCICLIB
     Dosage: 600 MG
     Route: 065
  4. RIBOCICLIB [Suspect]
     Active Substance: RIBOCICLIB
     Dosage: 600 MG
     Route: 065
     Dates: start: 20220120

REACTIONS (9)
  - Hypertension [Recovered/Resolved]
  - Hypertension [Unknown]
  - Neutrophil count decreased [Not Recovered/Not Resolved]
  - Fatigue [Recovered/Resolved]
  - Breast mass [Not Recovered/Not Resolved]
  - Localised infection [Not Recovered/Not Resolved]
  - Cough [Recovered/Resolved]
  - Dry mouth [Unknown]
  - Fatigue [Not Recovered/Not Resolved]

NARRATIVE: CASE EVENT DATE: 19700101
